FAERS Safety Report 4334311-5 (Version None)
Quarter: 2004Q2

REPORT INFORMATION
  Report Type: 
  Country: None (occurrence: None)
  Receive Date: 20040405
  Receipt Date: 20040211
  Transmission Date: 20050107
  Serious: Yes (Other)
  Sender: FDA-Public Use
  Company Number: A0497660A

PATIENT
  Age: 25 Year
  Sex: Female

DRUGS (1)
  1. NICODERM CQ [Suspect]
     Indication: EX-SMOKER
     Dosage: 21 MG / PER DAY / TRANSDERMAL
     Route: 062
     Dates: start: 19990101, end: 19990101

REACTIONS (7)
  - CAESAREAN SECTION [None]
  - COMPLICATIONS OF MATERNAL EXPOSURE TO THERAPEUTIC DRUGS [None]
  - DIZZINESS [None]
  - HYPERHIDROSIS [None]
  - MATERNAL DRUGS AFFECTING FOETUS [None]
  - NAUSEA [None]
  - PREMATURE BABY [None]
